FAERS Safety Report 8975729 (Version 1)
Quarter: 2012Q4

REPORT INFORMATION
  Report Type: 
  Country: US (occurrence: US)
  Receive Date: 20121219
  Receipt Date: 20121219
  Transmission Date: 20130627
  Serious: No
  Sender: FDA-Public Use
  Company Number: US-AMGEN-USASP2012058909

PATIENT
  Age: 68 Year
  Sex: Female
  Weight: 55.78 kg

DRUGS (6)
  1. PROLIA [Suspect]
     Indication: OSTEOPOROSIS POSTMENOPAUSAL
     Dosage: 60 mg, q6mo
     Route: 058
     Dates: start: 20120510
  2. ZOCOR [Concomitant]
     Indication: LIPIDS INCREASED
     Dosage: 40 mg, qd
     Route: 048
  3. PAMELOR [Concomitant]
     Indication: DEPRESSION
     Dosage: 70 mg, qd
     Route: 048
  4. ATIVAN [Concomitant]
     Indication: IRRITABLE BOWEL SYNDROME
     Dosage: 5 mg, qd
     Route: 048
  5. PERPHENAZINE [Concomitant]
     Indication: IRRITABLE BOWEL SYNDROME
     Dosage: 4 mg, qd
     Route: 048
  6. CLARITIN [Concomitant]
     Indication: HYPERSENSITIVITY
     Dosage: 10 mg, qd
     Route: 048

REACTIONS (3)
  - Otitis media [Recovered/Resolved]
  - Ear pain [Recovered/Resolved]
  - Eczema [Recovered/Resolved]
